FAERS Safety Report 14793992 (Version 2)
Quarter: 2018Q4

REPORT INFORMATION
  Report Type: Report from Study
  Country: JP (occurrence: JP)
  Receive Date: 20180423
  Receipt Date: 20181027
  Transmission Date: 20190204
  Serious: Yes (Death, Life-Threatening, Hospitalization, Other)
  Sender: FDA-Public Use
  Company Number: JP-009507513-1804JPN001895J

PATIENT
  Age: 77 Year
  Sex: Male
  Weight: 57 kg

DRUGS (12)
  1. OZAGREL SODIUM [Suspect]
     Active Substance: OZAGREL SODIUM
     Dosage: 80 MILLIGRAM, BID
     Route: 042
     Dates: start: 20180317, end: 20180329
  2. NAIXAN [Concomitant]
     Active Substance: NAPROXEN SODIUM
     Indication: TRANSITIONAL CELL CARCINOMA
     Dosage: 100 MILLIGRAM, BID
     Route: 048
     Dates: start: 20180216, end: 20180323
  3. MAGMITT [Concomitant]
     Active Substance: MAGNESIUM OXIDE
     Indication: CONSTIPATION
     Dosage: 330 MILLIGRAM, TID
     Route: 048
     Dates: start: 20170921, end: 20180323
  4. FEBURIC [Concomitant]
     Active Substance: FEBUXOSTAT
     Indication: HYPERURICAEMIA
     Dosage: 20 MILLIGRAM, QD
     Route: 048
     Dates: end: 20180323
  5. TAKEPRON [Concomitant]
     Active Substance: LANSOPRAZOLE
     Indication: TRANSITIONAL CELL CARCINOMA
     Dosage: 15 MILLIGRAM, QD
     Route: 048
     Dates: start: 20180216, end: 20180323
  6. PURSENNID [Concomitant]
     Active Substance: SENNOSIDES A AND B
     Indication: CONSTIPATION
     Dosage: 24 MILLIGRAM, QD
     Route: 048
     Dates: start: 20170921, end: 20180323
  7. LOSARTAN K [Concomitant]
     Active Substance: LOSARTAN POTASSIUM
     Indication: HYPERTENSION
     Dosage: 50 MILLIGRAM, QD
     Route: 048
     Dates: end: 20180323
  8. CALONAL [Concomitant]
     Active Substance: ACETAMINOPHEN
     Indication: TRANSITIONAL CELL CARCINOMA
     Dosage: 300 MILLIGRAM, PRN
     Route: 048
     Dates: start: 20180208, end: 20180323
  9. KEYTRUDA [Suspect]
     Active Substance: PEMBROLIZUMAB
     Indication: TRANSITIONAL CELL CARCINOMA
     Dosage: 200 MILLIGRAM, Q3W
     Route: 041
     Dates: start: 20180221, end: 20180314
  10. ADONA [CARBAZOCHROME SODIUM SULFONATE] [Concomitant]
     Active Substance: CARBAZOCHROME SODIUM SULFONATE
     Indication: TRANSITIONAL CELL CARCINOMA
     Dosage: 30 MILLIGRAM, TID
     Route: 048
     Dates: start: 20180216, end: 20180323
  11. TRANSAMIN [Concomitant]
     Active Substance: TRANEXAMIC ACID
     Indication: TRANSITIONAL CELL CARCINOMA
     Dosage: 250 MILLIGRAM, TID
     Route: 048
     Dates: start: 20180216, end: 20180323
  12. CARBAZOCHROME [Concomitant]
     Active Substance: CARBAZOCHROME
     Indication: TRANSITIONAL CELL CARCINOMA
     Dosage: 50 MILLIGRAM, QD
     Route: 042
     Dates: start: 20180320, end: 20180329

REACTIONS (7)
  - Malignant neoplasm progression [Fatal]
  - Platelet count decreased [Not Recovered/Not Resolved]
  - Cerebral infarction [Recovering/Resolving]
  - Renal failure [Not Recovered/Not Resolved]
  - White blood cell count increased [Recovered/Resolved]
  - C-reactive protein increased [Not Recovered/Not Resolved]
  - Blood lactate dehydrogenase increased [Not Recovered/Not Resolved]

NARRATIVE: CASE EVENT DATE: 20180228
